FAERS Safety Report 9289823 (Version 2)
Quarter: 2013Q2

REPORT INFORMATION
  Report Type: Spontaneous
  Country: SE (occurrence: SE)
  Receive Date: 20130515
  Receipt Date: 20130604
  Transmission Date: 20140414
  Serious: Yes (Life-Threatening)
  Sender: FDA-Public Use
  Company Number: SE-ROCHE-1223822

PATIENT
  Age: 63 Year
  Sex: Male

DRUGS (5)
  1. AVASTIN [Suspect]
     Indication: PRODUCT USED FOR UNKNOWN INDICATION
     Route: 042
     Dates: start: 2013
  2. LIPITOR [Concomitant]
  3. BETAPRED [Concomitant]
     Route: 065
  4. FRAGMIN [Concomitant]
     Dosage: SOULOTION FOR INJECTION, PRE-FILLED SYRUING 15000 IE
     Route: 065
  5. SELOCOMP ZOC [Concomitant]
     Route: 065

REACTIONS (5)
  - C-reactive protein increased [Recovered/Resolved with Sequelae]
  - Abscess [Recovered/Resolved with Sequelae]
  - Large intestinal ulcer haemorrhage [Recovered/Resolved with Sequelae]
  - Vomiting [Recovered/Resolved with Sequelae]
  - Abdominal pain [Recovered/Resolved with Sequelae]
